FAERS Safety Report 23185710 (Version 1)
Quarter: 2023Q4

REPORT INFORMATION
  Report Type: Report from Study
  Country: PK (occurrence: PK)
  Receive Date: 20231115
  Receipt Date: 20231115
  Transmission Date: 20240110
  Serious: Yes (Other)
  Sender: FDA-Public Use
  Company Number: PK-002147023-NVSC2023PK241318

PATIENT
  Age: 15 Year
  Sex: Male
  Weight: 28 kg

DRUGS (2)
  1. AFINITOR [Suspect]
     Active Substance: EVEROLIMUS
     Indication: Tuberous sclerosis complex
     Dosage: 5 MG, QD (ONE TAB OD) (STRENGTH: 5 MG)
     Route: 048
     Dates: start: 20211217, end: 20231108
  2. AFINITOR [Suspect]
     Active Substance: EVEROLIMUS
     Dosage: 10 MG, QD (ONE TAB OD) (STRENGTH: 10 MG)
     Route: 048
     Dates: start: 20231108

REACTIONS (2)
  - Seizure [Unknown]
  - Disease progression [Unknown]

NARRATIVE: CASE EVENT DATE: 20231108
